FAERS Safety Report 13938996 (Version 1)
Quarter: 2017Q3

REPORT INFORMATION
  Report Type: Report from Study
  Country: None (occurrence: US)
  Receive Date: 20170906
  Receipt Date: 20170906
  Transmission Date: 20171127
  Serious: Yes (Other)
  Sender: FDA-Public Use
  Company Number: US-ABBVIE-17K-163-2092762-00

PATIENT
  Sex: Female

DRUGS (1)
  1. HUMIRA [Suspect]
     Active Substance: ADALIMUMAB
     Indication: CROHN^S DISEASE
     Route: 058

REACTIONS (5)
  - Loss of consciousness [Not Recovered/Not Resolved]
  - Joint swelling [Not Recovered/Not Resolved]
  - Lichen planus [Not Recovered/Not Resolved]
  - Arthralgia [Not Recovered/Not Resolved]
  - Peripheral swelling [Not Recovered/Not Resolved]
